FAERS Safety Report 12619094 (Version 6)
Quarter: 2016Q4

REPORT INFORMATION
  Report Type: Spontaneous
  Country: ES (occurrence: ES)
  Receive Date: 20160803
  Receipt Date: 20161102
  Transmission Date: 20170207
  Serious: Yes (Other)
  Sender: FDA-Public Use
  Company Number: ES-GE HEALTHCARE MEDICAL DIAGNOSTICS-OSCN-PR-1607L-0102

PATIENT
  Sex: Male

DRUGS (17)
  1. GADOLINIUM (UNSPECIFIED) [Suspect]
     Active Substance: GADOLINIUM
     Indication: JAUNDICE CHOLESTATIC
     Dosage: DOSE NOT REPORTED
     Route: 065
     Dates: start: 20110428, end: 20110428
  2. GADOLINIUM (UNSPECIFIED) [Suspect]
     Active Substance: GADOLINIUM
     Indication: LUMBAR HERNIA
  3. OMEPRAZOLE. [Concomitant]
     Active Substance: OMEPRAZOLE
  4. DICLOFENAC [Concomitant]
     Active Substance: DICLOFENAC
     Indication: BACK PAIN
  5. SALICYLIC ACID. [Concomitant]
     Active Substance: SALICYLIC ACID
  6. GADOLINIUM (UNSPECIFIED) [Suspect]
     Active Substance: GADOLINIUM
     Indication: LIVER DISORDER
     Dosage: DOSE NOT REPORTED
     Route: 065
     Dates: start: 20051221, end: 20051221
  7. GADOLINIUM (UNSPECIFIED) [Suspect]
     Active Substance: GADOLINIUM
     Indication: INJURY
     Dosage: DOSE NOT REPORTED
     Route: 065
     Dates: start: 20150317, end: 20150317
  8. INDOMETHACIN. [Concomitant]
     Active Substance: INDOMETHACIN
  9. DOXAZOSINE [Concomitant]
     Active Substance: DOXAZOSIN MESYLATE
  10. ENALAPRIL [Concomitant]
     Active Substance: ENALAPRIL
  11. GADOLINIUM (UNSPECIFIED) [Suspect]
     Active Substance: GADOLINIUM
     Indication: PANCREATITIS
  12. GADOLINIUM (UNSPECIFIED) [Suspect]
     Active Substance: GADOLINIUM
     Indication: DIAGNOSTIC PROCEDURE
  13. COLCHICINE. [Concomitant]
     Active Substance: COLCHICINE
  14. FUROSEMIDE. [Concomitant]
     Active Substance: FUROSEMIDE
  15. AMLODIPINE [Concomitant]
     Active Substance: AMLODIPINE BESYLATE
  16. ALOPURINOL [Concomitant]
     Active Substance: ALLOPURINOL
  17. CARVEDILOL. [Concomitant]
     Active Substance: CARVEDILOL

REACTIONS (1)
  - Nephrogenic systemic fibrosis [Recovering/Resolving]

NARRATIVE: CASE EVENT DATE: 2013
